FAERS Safety Report 20461104 (Version 7)
Quarter: 2024Q2

REPORT INFORMATION
  Report Type: Spontaneous
  Country: US (occurrence: US)
  Receive Date: 20220211
  Receipt Date: 20240417
  Transmission Date: 20240715
  Serious: Yes (Other)
  Sender: FDA-Public Use
  Company Number: US-SA-SAC20220204001089

PATIENT
  Age: 12 Year
  Sex: Male

DRUGS (5)
  1. DUPIXENT [Suspect]
     Active Substance: DUPILUMAB
     Indication: Asthma
     Dosage: 400 MG, 1X, START DATE: 02-FEB-2022, END DATE: 02-FEB-2022
     Route: 058
  2. DUPIXENT [Suspect]
     Active Substance: DUPILUMAB
     Dosage: 200 MG, QOW, START DATE: ??-FEB-2022
     Route: 058
  3. NUTROPIN AG [Concomitant]
     Dosage: UNK
  4. XOLAIR [Concomitant]
     Active Substance: OMALIZUMAB
     Dosage: UNK
  5. SOMATROPIN [Concomitant]
     Active Substance: SOMATROPIN

REACTIONS (7)
  - Pneumonia [Unknown]
  - Palpitations [Unknown]
  - Impaired quality of life [Not Recovered/Not Resolved]
  - Urticaria [Unknown]
  - Asthma [Not Recovered/Not Resolved]
  - Injection site reaction [Unknown]
  - Drug ineffective [Unknown]

NARRATIVE: CASE EVENT DATE: 20230101
